FAERS Safety Report 13144932 (Version 2)
Quarter: 2017Q1

REPORT INFORMATION
  Report Type: Spontaneous
  Country: GB (occurrence: GB)
  Receive Date: 20170124
  Receipt Date: 20170130
  Transmission Date: 20170428
  Serious: Yes (Life-Threatening, Other)
  Sender: FDA-Public Use
  Company Number: PHFR2017GB000727

PATIENT
  Age: 37 Year
  Sex: Male

DRUGS (1)
  1. CICLOSPORIN [Suspect]
     Active Substance: CYCLOSPORINE
     Indication: PSORIASIS
     Dosage: 375 MG, QD (200MG AM AND 175MG PM)
     Route: 065
     Dates: start: 20140411

REACTIONS (7)
  - Alanine aminotransferase increased [Unknown]
  - Nephrolithiasis [Unknown]
  - Pain [Unknown]
  - Nausea [Unknown]
  - Blood bilirubin increased [Unknown]
  - Blood pressure increased [Unknown]
  - Viral infection [Unknown]

NARRATIVE: CASE EVENT DATE: 2014
